FAERS Safety Report 8322185-7 (Version None)
Quarter: 2012Q2

REPORT INFORMATION
  Report Type: 
  Country: None (occurrence: None)
  Receive Date: 20120430
  Receipt Date: 20110705
  Transmission Date: 20120825
  Serious: No
  Sender: FDA-Public Use
  Company Number: US-COVIDIEN/TYCO HEALTHCARE/MALLINCKRODT-T201101341

PATIENT
  Sex: Female

DRUGS (1)
  1. HYDROCODONE BITARTRATE + ACETAMINOPHEN [Suspect]
     Indication: DENTAL DISCOMFORT
     Dosage: 1 TAB Q 4-6 HRS, ( 2 -3 TABS PER DAY)
     Route: 048
     Dates: start: 20110626, end: 20110627

REACTIONS (1)
  - CANDIDIASIS [None]
